FAERS Safety Report 6516998-1 (Version None)
Quarter: 2009Q4

REPORT INFORMATION
  Report Type: 
  Country: None (occurrence: None)
  Receive Date: 20091223
  Receipt Date: 20091214
  Transmission Date: 20100525
  Serious: Yes (Death, Hospitalization)
  Sender: FDA-Public Use
  Company Number: TW-BAXTER-2009BH019373

PATIENT
  Sex: Female

DRUGS (1)
  1. DIANEAL [Suspect]
     Indication: PERITONEAL DIALYSIS
     Route: 033
     Dates: start: 20091001

REACTIONS (3)
  - INTERVERTEBRAL DISC PROTRUSION [None]
  - MULTI-ORGAN FAILURE [None]
  - SEPTIC SHOCK [None]
